FAERS Safety Report 18578989 (Version 1)
Quarter: 2020Q4

REPORT INFORMATION
  Report Type: Spontaneous
  Country: US (occurrence: US)
  Receive Date: 20201203
  Receipt Date: 20201203
  Transmission Date: 20210114
  Serious: Yes (Hospitalization, Other)
  Sender: FDA-Public Use
  Company Number: None

PATIENT
  Age: 62 Year
  Sex: Male

DRUGS (4)
  1. NUCALA [Suspect]
     Active Substance: MEPOLIZUMAB
     Indication: ASTHMA
     Dosage: ?          OTHER FREQUENCY:EVERY 4 WEEKS;??
     Route: 058
     Dates: start: 20190716
  2. MELOXICAM. [Concomitant]
     Active Substance: MELOXICAM
  3. DICLOFENAC [Concomitant]
     Active Substance: DICLOFENAC
  4. ALBUTEROL. [Concomitant]
     Active Substance: ALBUTEROL

REACTIONS (2)
  - Product supply issue [None]
  - Product dose omission issue [None]

NARRATIVE: CASE EVENT DATE: 20201120
